FAERS Safety Report 8484141-8 (Version None)
Quarter: 2012Q3

REPORT INFORMATION
  Report Type: 
  Country: None (occurrence: None)
  Receive Date: 20120703
  Receipt Date: 20120626
  Transmission Date: 20120928
  Serious: No
  Sender: FDA-Public Use
  Company Number: US-PFIZER INC-2012154628

PATIENT
  Sex: Female
  Weight: 54.422 kg

DRUGS (4)
  1. CLINDAMYCIN HCL [Suspect]
     Dosage: UNK
  2. KEFLEX [Suspect]
     Dosage: UNK
  3. POTASSIUM PENICILLIN G [Suspect]
     Dosage: UNK
  4. VANCOMYCIN HYCHLORIDE [Suspect]
     Dosage: UNK

REACTIONS (2)
  - HYPERSENSITIVITY [None]
  - DRUG HYPERSENSITIVITY [None]
